FAERS Safety Report 9297437 (Version 1)
Quarter: 2013Q2

REPORT INFORMATION
  Report Type: Spontaneous
  Country: US (occurrence: US)
  Receive Date: 20130520
  Receipt Date: 20130520
  Transmission Date: 20140414
  Serious: No
  Sender: FDA-Public Use
  Company Number: US-B.I. PHARMACEUTICALS,INC./RIDGEFIELD-2013-BI-13363BP

PATIENT
  Sex: Male
  Weight: 44 kg

DRUGS (4)
  1. SPIRIVA [Suspect]
     Indication: EMPHYSEMA
     Dosage: 18 MCG
     Route: 055
     Dates: start: 201304
  2. VENTOLIN FHA [Concomitant]
     Indication: EMPHYSEMA
     Dosage: STRENGTH: 160/4.5 MCG; DAILY DOSE: 320/9.0 MCG
     Route: 055
     Dates: start: 2012
  3. SYMBICORT [Concomitant]
     Indication: EMPHYSEMA
     Route: 055
     Dates: start: 2012
  4. BUDESONIDE [Concomitant]

REACTIONS (2)
  - Cardiac disorder [Not Recovered/Not Resolved]
  - Respiration abnormal [Not Recovered/Not Resolved]
